FAERS Safety Report 5839538-9 (Version None)
Quarter: 2008Q3

REPORT INFORMATION
  Report Type: 
  Country: None (occurrence: None)
  Receive Date: 20080811
  Receipt Date: 20080731
  Transmission Date: 20090109
  Serious: Yes (Disabling, Other)
  Sender: FDA-Public Use
  Company Number: GB-RANBAXY-2008RR-15414

PATIENT

DRUGS (6)
  1. OFLOXACIN 200MG TABLETS [Suspect]
     Indication: CORNEAL ABSCESS
     Dosage: 1 DF, QID
  2. TIMOLOL MALEATE [Suspect]
     Indication: POSTOPERATIVE CARE
     Dosage: 2 DF, QD
     Route: 047
  3. CEFUROXIME [Suspect]
     Indication: CORNEAL ABSCESS
     Dosage: UNK
     Route: 047
  4. EXOCIN [Suspect]
     Indication: CORNEAL ABSCESS
     Dosage: UNK
     Route: 047
  5. EXOCIN [Suspect]
     Dosage: UNK
     Route: 047
  6. PREDNISOLONE SODIUM PHOSPHATE [Suspect]
     Indication: POSTOPERATIVE CARE
     Dosage: 1 DF, BID
     Route: 047

REACTIONS (2)
  - CORNEAL EPITHELIUM DEFECT [None]
  - VISUAL ACUITY REDUCED [None]
